FAERS Safety Report 5858233-3 (Version None)
Quarter: 2008Q3

REPORT INFORMATION
  Report Type: 
  Country: None (occurrence: None)
  Receive Date: 20080826
  Receipt Date: 20080821
  Transmission Date: 20090109
  Serious: Yes (Hospitalization)
  Sender: FDA-Public Use
  Company Number: A0734605A

PATIENT
  Age: 61 Year
  Sex: Female
  Weight: 118.2 kg

DRUGS (7)
  1. AVANDIA [Suspect]
     Dosage: 4MG PER DAY
     Route: 048
     Dates: start: 20040101, end: 20070501
  2. AMARYL [Concomitant]
  3. VYTORIN [Concomitant]
  4. FUROSEMIDE [Concomitant]
  5. NITROGLYCERIN [Concomitant]
  6. TOPROL-XL [Concomitant]
  7. GLUCOPHAGE [Concomitant]

REACTIONS (5)
  - ANXIETY [None]
  - CARDIAC FAILURE CONGESTIVE [None]
  - HEART INJURY [None]
  - MYOCARDIAL INFARCTION [None]
  - PAIN [None]
